FAERS Safety Report 12550369 (Version 2)
Quarter: 2016Q3

REPORT INFORMATION
  Report Type: Spontaneous
  Country: DE (occurrence: DE)
  Receive Date: 20160712
  Receipt Date: 20160729
  Transmission Date: 20161109
  Serious: Yes (Death)
  Sender: FDA-Public Use
  Company Number: DE-TEVA-674227GER

PATIENT
  Age: 61 Year
  Sex: Female

DRUGS (5)
  1. TAVOR (LORAZEPAM) [Concomitant]
     Active Substance: LORAZEPAM
     Indication: ANXIETY DISORDER
     Dates: start: 201512
  2. MIRTAZAPIN [Concomitant]
     Active Substance: MIRTAZAPINE
     Indication: DEPRESSION
     Dates: start: 201512
  3. TAVOR (LORAZEPAM) [Concomitant]
     Active Substance: LORAZEPAM
     Indication: PANIC ATTACK
  4. LETROZOL-RATIOPHARM 2,5 MG FILMTABLETTEN [Suspect]
     Active Substance: LETROZOLE
     Indication: BREAST CANCER FEMALE
     Dates: start: 201512
  5. SERTRALINE [Concomitant]
     Active Substance: SERTRALINE HYDROCHLORIDE
     Indication: DEPRESSION

REACTIONS (6)
  - Depression [Fatal]
  - Anxiety [Fatal]
  - Listless [Fatal]
  - Panic attack [Fatal]
  - Completed suicide [Fatal]
  - Anxiety disorder [Fatal]

NARRATIVE: CASE EVENT DATE: 201512
